FAERS Safety Report 22284166 (Version 2)
Quarter: 2023Q2

REPORT INFORMATION
  Report Type: Spontaneous
  Country: US (occurrence: US)
  Receive Date: 20230504
  Receipt Date: 20230626
  Transmission Date: 20230721
  Serious: Yes (Other)
  Sender: FDA-Public Use
  Company Number: US-PFIZER INC-PV202300078247

PATIENT
  Age: 72 Year
  Sex: Female

DRUGS (1)
  1. RETACRIT [Suspect]
     Active Substance: EPOETIN ALFA-EPBX
     Dosage: UNK, CYCLIC, [SHE TAKES IT FOR CONSECUTIVE 7 DAYS, WEEK ON WEEK OFF]

REACTIONS (2)
  - Pneumonia [Unknown]
  - COVID-19 [Unknown]
